FAERS Safety Report 22590694 (Version 4)
Quarter: 2024Q2

REPORT INFORMATION
  Report Type: Spontaneous
  Country: US (occurrence: US)
  Receive Date: 20230612
  Receipt Date: 20240408
  Transmission Date: 20240716
  Serious: Yes (Hospitalization, Other)
  Sender: FDA-Public Use
  Company Number: US-JNJFOC-20230609489

PATIENT
  Age: 6 Year
  Sex: Male

DRUGS (4)
  1. AVOBENZONE\HOMOSALATE\OCTISALATE\OCTOCRYLENE OR AVOBENZONE\HOMOSALATE\ [Suspect]
     Active Substance: AVOBENZONE\HOMOSALATE\OCTISALATE\OCTOCRYLENE OR AVOBENZONE\HOMOSALATE\OCTISALATE\OCTOCRYLENE\OXYBENZ
     Indication: Product used for unknown indication
     Dosage: REGULARLY AND TYPICALLY ON A WEEKLY BASIS NEAR THEIR HOME, THEIR POOL, THE BEACH, AND IN DAILY OUTSI
     Route: 061
     Dates: start: 201210, end: 202112
  2. AVOBENZONE\HOMOSALATE\OCTISALATE\OCTOCRYLENE [Suspect]
     Active Substance: AVOBENZONE\HOMOSALATE\OCTISALATE\OCTOCRYLENE
     Indication: Product used for unknown indication
     Dosage: REGULARLY AND TYPICALLY ON A WEEKLY BASIS NEAR THEIR HOME, THEIR POOL, THE BEACH, AND IN DAILY OUTSI
     Route: 061
     Dates: start: 201210, end: 202112
  3. AVOBENZONE\HOMOSALATE\OCTISALATE\OCTOCRYLENE [Suspect]
     Active Substance: AVOBENZONE\HOMOSALATE\OCTISALATE\OCTOCRYLENE
     Indication: Product used for unknown indication
     Dosage: REGULARLY AND TYPICALLY ON A WEEKLY BASIS NEAR THEIR HOME, THEIR POOL, THE BEACH, AND IN DAILY OUTSI
     Route: 061
     Dates: start: 201210, end: 202112
  4. TITANIUM DIOXIDE\ZINC OXIDE [Suspect]
     Active Substance: TITANIUM DIOXIDE\ZINC OXIDE
     Indication: Product used for unknown indication
     Dosage: REGULARLY AND TYPICALLY ON A WEEKLY BASIS NEAR THEIR HOME, THEIR POOL, THE BEACH, AND IN DAILY OUTSI
     Route: 061
     Dates: start: 201210, end: 202112

REACTIONS (3)
  - Acute myeloid leukaemia [Unknown]
  - Exposure to toxic agent [Unknown]
  - Product contamination chemical [Unknown]

NARRATIVE: CASE EVENT DATE: 20181228
